FAERS Safety Report 11753388 (Version 2)
Quarter: 2015Q4

REPORT INFORMATION
  Report Type: Spontaneous
  Country: TW (occurrence: TW)
  Receive Date: 20151119
  Receipt Date: 20151130
  Transmission Date: 20160304
  Serious: Yes (Hospitalization)
  Sender: FDA-Public Use
  Company Number: TW-AMGEN-TWNSP2015122728

PATIENT
  Age: 52 Year
  Sex: Female

DRUGS (4)
  1. AELOCON [Concomitant]
     Indication: PSORIATIC ARTHROPATHY
     Dosage: 1 DF, QD
     Route: 048
  2. MOBIC [Concomitant]
     Active Substance: MELOXICAM
     Indication: PSORIATIC ARTHROPATHY
     Dosage: 1 DF, QD
     Route: 048
  3. ENBREL [Suspect]
     Active Substance: ETANERCEPT
     Indication: PSORIATIC ARTHROPATHY
     Dosage: 25 MG, 2X/WEEK
     Route: 058
     Dates: start: 20101127
  4. SULFASALAZINE. [Concomitant]
     Active Substance: SULFASALAZINE
     Indication: PSORIATIC ARTHROPATHY
     Dosage: 1 DF, BID
     Route: 048

REACTIONS (3)
  - Viral infection [Recovered/Resolved]
  - Dyspnoea [Recovering/Resolving]
  - Pharyngeal oedema [Recovering/Resolving]
